FAERS Safety Report 14495672 (Version 1)
Quarter: 2018Q1

REPORT INFORMATION
  Report Type: Report from Study
  Country: None (occurrence: SE)
  Receive Date: 20180206
  Receipt Date: 20180206
  Transmission Date: 20180509
  Serious: Yes (Other)
  Sender: FDA-Public Use
  Company Number: SE-ABBVIE-18K-150-2242035-00

PATIENT
  Age: 76 Year
  Sex: Male

DRUGS (2)
  1. DUODOPA [Suspect]
     Active Substance: CARBIDOPA\LEVODOPA
     Dosage: MD: 10 ML??CD: 5.1 ML/H??XD: 2 ML
     Route: 050
     Dates: start: 20150325
  2. DUODOPA [Suspect]
     Active Substance: CARBIDOPA\LEVODOPA
     Indication: PARKINSON^S DISEASE
     Route: 050
     Dates: start: 20150316, end: 201503

REACTIONS (5)
  - C-reactive protein increased [Not Recovered/Not Resolved]
  - Erythema [Not Recovered/Not Resolved]
  - Post procedural infection [Not Recovered/Not Resolved]
  - Embedded device [Recovered/Resolved]
  - Abscess [Not Recovered/Not Resolved]

NARRATIVE: CASE EVENT DATE: 20180125
